FAERS Safety Report 7512777-7 (Version None)
Quarter: 2011Q2

REPORT INFORMATION
  Report Type: 
  Country: None (occurrence: None)
  Receive Date: 20110531
  Receipt Date: 20110524
  Transmission Date: 20111010
  Serious: Yes (Other)
  Sender: FDA-Public Use
  Company Number: B0707511A

PATIENT
  Sex: Female

DRUGS (4)
  1. VALACYCLOVIR HYDROCHLORIDE [Suspect]
     Route: 048
  2. TITANOREINE [Suspect]
     Route: 061
  3. DUPHASTON [Suspect]
     Route: 048
  4. LANSOYL [Suspect]
     Route: 065

REACTIONS (1)
  - AGRANULOCYTOSIS [None]
